FAERS Safety Report 8953886 (Version 1)
Quarter: 2012Q4

REPORT INFORMATION
  Report Type: 
  Country: DE (occurrence: DE)
  Receive Date: 20121206
  Receipt Date: 20121206
  Transmission Date: 20130627
  Serious: Yes (Life-Threatening, Disabling)
  Sender: FDA-Public Use
  Company Number: DE-B.I. PHARMACEUTICALS,INC./RIDGEFIELD-2012-DE-02914DE

PATIENT
  Age: 87 Year
  Sex: Female
  Weight: 85 kg

DRUGS (1)
  1. PRADAXA [Suspect]
     Indication: ATRIAL FIBRILLATION
     Dosage: 110 mg
     Route: 048
     Dates: start: 201206, end: 20120812

REACTIONS (2)
  - Melaena [Recovered/Resolved with Sequelae]
  - Coma [Recovered/Resolved with Sequelae]
